FAERS Safety Report 17718759 (Version 4)
Quarter: 2020Q2

REPORT INFORMATION
  Report Type: Spontaneous
  Country: CA (occurrence: CA)
  Receive Date: 20200428
  Receipt Date: 20200520
  Transmission Date: 20200714
  Serious: Yes (Other)
  Sender: FDA-Public Use
  Company Number: CA-PFIZER INC-2020165656

PATIENT
  Age: 60 Year
  Sex: Male

DRUGS (3)
  1. SULFASALAZINE. [Suspect]
     Active Substance: SULFASALAZINE
     Indication: PSORIATIC ARTHROPATHY
     Dosage: 1500 MG, 2X/DAY
     Route: 048
     Dates: start: 20190415, end: 20200128
  2. METHOTREXATE. [Concomitant]
     Active Substance: METHOTREXATE
     Dosage: 25 MG, WEEKLY
     Dates: start: 20181006, end: 20200128
  3. SULFASALAZINE. [Suspect]
     Active Substance: SULFASALAZINE
     Indication: SPONDYLOARTHROPATHY

REACTIONS (4)
  - Latent tuberculosis [Unknown]
  - Off label use [Unknown]
  - Drug ineffective for unapproved indication [Unknown]
  - Weight increased [Unknown]

NARRATIVE: CASE EVENT DATE: 20190415
